FAERS Safety Report 7833857-2 (Version None)
Quarter: 2011Q4

REPORT INFORMATION
  Report Type: 
  Country: None (occurrence: None)
  Receive Date: 20111024
  Receipt Date: 20111017
  Transmission Date: 20120403
  Serious: Yes (Death)
  Sender: FDA-Public Use
  Company Number: US-GLAXOSMITHKLINE-B0757587A

PATIENT

DRUGS (2)
  1. MELPHALAN HYDROCHLORIDE [Suspect]
     Indication: ACUTE MYELOID LEUKAEMIA
     Dosage: 100MGM2 PER DAY
     Route: 042
  2. CLOFARABINE [Suspect]
     Indication: ACUTE MYELOID LEUKAEMIA
     Dosage: 40MGM2 PER DAY
     Route: 042

REACTIONS (3)
  - INFECTION [None]
  - HEPATOTOXICITY [None]
  - NEPHROPATHY TOXIC [None]
